FAERS Safety Report 9499855 (Version 1)
Quarter: 2013Q3

REPORT INFORMATION
  Report Type: Spontaneous
  Country: US (occurrence: None)
  Receive Date: 20130904
  Receipt Date: 20130904
  Transmission Date: 20140515
  Serious: Yes (Other)
  Sender: FDA-Public Use
  Company Number: None

PATIENT
  Age: 53 Year
  Sex: Female
  Weight: 58.97 kg

DRUGS (2)
  1. ESCITALOPRAM [Suspect]
     Indication: ANXIETY
     Route: 048
     Dates: start: 20130825, end: 20130827
  2. ESCITALOPRAM [Suspect]
     Indication: MAJOR DEPRESSION
     Route: 048
     Dates: start: 20130825, end: 20130827

REACTIONS (5)
  - Vertigo [None]
  - Nausea [None]
  - Hot flush [None]
  - Unevaluable event [None]
  - Mobility decreased [None]
